FAERS Safety Report 6160327-2 (Version None)
Quarter: 2009Q2

REPORT INFORMATION
  Report Type: 
  Country: None (occurrence: None)
  Receive Date: 20090415
  Receipt Date: 20090415
  Transmission Date: 20091009
  Serious: No
  Sender: FDA-Public Use
  Company Number: None

PATIENT

DRUGS (1)
  1. MIDAZOLAM HCL [Suspect]

REACTIONS (3)
  - AGITATION [None]
  - DRUG EFFECT DELAYED [None]
  - DRUG INEFFECTIVE [None]
